FAERS Safety Report 6438865-4 (Version None)
Quarter: 2009Q4

REPORT INFORMATION
  Report Type: 
  Country: None (occurrence: None)
  Receive Date: 20091111
  Receipt Date: 20091111
  Transmission Date: 20100525
  Serious: Yes (Hospitalization)
  Sender: FDA-Public Use
  Company Number: None

PATIENT
  Sex: Male
  Weight: 44.5 kg

DRUGS (2)
  1. DOCETAXEL [Suspect]
     Indication: PROSTATE CANCER
     Dosage: 75MG/M2 Q 21 D IV
     Route: 042
     Dates: start: 20090922, end: 20091013
  2. BOTEZOMIB LAST DOSE 10/20/2009 3.3MG [Suspect]
     Indication: PROSTATE CANCER
     Dosage: 1.6 MG/M2 D1,D8 Q 21 IV
     Route: 042
     Dates: start: 20090922, end: 20091020

REACTIONS (3)
  - FEBRILE NEUTROPENIA [None]
  - NEUTROPHIL COUNT DECREASED [None]
  - WHITE BLOOD CELL COUNT DECREASED [None]
